FAERS Safety Report 12278744 (Version 4)
Quarter: 2016Q2

REPORT INFORMATION
  Report Type: Spontaneous
  Country: UA (occurrence: UA)
  Receive Date: 20160418
  Receipt Date: 20160513
  Transmission Date: 20160815
  Serious: Yes (Death, Life-Threatening, Hospitalization, Other)
  Sender: FDA-Public Use
  Company Number: UA-ASTRAZENECA-2016SE38757

PATIENT
  Sex: Female

DRUGS (4)
  1. CORAXAN [Concomitant]
     Active Substance: IVABRADINE HYDROCHLORIDE
     Route: 048
  2. XGEVA [Concomitant]
     Active Substance: DENOSUMAB
  3. CORYOL [Concomitant]
     Active Substance: CARVEDILOL
     Route: 048
  4. FASLODEX [Suspect]
     Active Substance: FULVESTRANT
     Indication: BREAST CANCER FEMALE
     Route: 030
     Dates: start: 20160405

REACTIONS (6)
  - Jaundice [Unknown]
  - Pruritus [Unknown]
  - Neoplasm malignant [Fatal]
  - Asthenia [Unknown]
  - Syncope [Unknown]
  - Fall [Unknown]

NARRATIVE: CASE EVENT DATE: 20160407
